FAERS Safety Report 9710611 (Version 2)
Quarter: 2014Q2

REPORT INFORMATION
  Report Type: Spontaneous
  Country: US (occurrence: US)
  Receive Date: 20131126
  Receipt Date: 20140510
  Transmission Date: 20141212
  Serious: No
  Sender: FDA-Public Use
  Company Number: US-BRISTOL-MYERS SQUIBB COMPANY-19459056

PATIENT
  Age: 78 Year
  Sex: Male
  Weight: 102.49 kg

DRUGS (7)
  1. BYDUREON [Suspect]
     Indication: TYPE 2 DIABETES MELLITUS
     Dosage: INTER ON 26DEC13?LOT NUMBER:73485,EXPDT:JUN16
     Route: 058
     Dates: start: 201304
  2. METFORMIN [Concomitant]
  3. LIPITOR [Concomitant]
  4. GLIMEPIRIDE [Concomitant]
  5. FLOMAX [Concomitant]
  6. FINASTERIDE [Concomitant]
  7. AMLODIPINE [Concomitant]

REACTIONS (9)
  - Injection site nodule [Unknown]
  - Product quality issue [Unknown]
  - Drug dose omission [Unknown]
  - Pruritus [Unknown]
  - Abdominal pain lower [Unknown]
  - Nausea [Unknown]
  - Decreased appetite [Unknown]
  - Dizziness [Unknown]
  - Weight decreased [Unknown]
